FAERS Safety Report 16300475 (Version 2)
Quarter: 2019Q3

REPORT INFORMATION
  Report Type: Spontaneous
  Country: JP (occurrence: JP)
  Receive Date: 20190510
  Receipt Date: 20190705
  Transmission Date: 20191004
  Serious: Yes (Other)
  Sender: FDA-Public Use
  Company Number: JP-PFIZER INC-2019197057

PATIENT
  Age: 90 Year
  Sex: Male

DRUGS (1)
  1. XALATAN [Suspect]
     Active Substance: LATANOPROST
     Indication: INTRAOCULAR PRESSURE DECREASED
     Dosage: 1 DF, DAILY

REACTIONS (1)
  - Blindness unilateral [Unknown]
